APPROVED DRUG PRODUCT: FAZACLO ODT
Active Ingredient: CLOZAPINE
Strength: 50MG **Federal Register determination that product was not discontinued or withdrawn for safety or effectiveness reasons**
Dosage Form/Route: TABLET, ORALLY DISINTEGRATING;ORAL
Application: N021590 | Product #003
Applicant: JAZZ PHARMACEUTICALS IRELAND LTD
Approved: Jun 3, 2005 | RLD: Yes | RS: No | Type: DISCN